FAERS Safety Report 24557627 (Version 1)
Quarter: 2024Q4

REPORT INFORMATION
  Report Type: Spontaneous
  Country: FR (occurrence: FR)
  Receive Date: 20241028
  Receipt Date: 20241028
  Transmission Date: 20250114
  Serious: Yes (Hospitalization)
  Sender: MYLAN
  Company Number: None

PATIENT
  Age: 6 Day
  Sex: Male

DRUGS (5)
  1. AMIODARONE [Suspect]
     Active Substance: AMIODARONE
     Indication: Product used for unknown indication
     Dosage: 1000 MILLIGRAM, 1 TOTAL
     Route: 064
     Dates: start: 20240911, end: 20240911
  2. AMIODARONE [Suspect]
     Active Substance: AMIODARONE
     Dosage: 1200 MILLIGRAM, QD
     Route: 064
     Dates: start: 20240912, end: 20240916
  3. AMIODARONE [Suspect]
     Active Substance: AMIODARONE
     Dosage: 400 MILLIGRAM, QD
     Route: 064
     Dates: start: 20240917, end: 20240924
  4. KIVEXA [Concomitant]
     Active Substance: ABACAVIR SULFATE\LAMIVUDINE
     Dosage: UNK
     Route: 065
  5. ISENTRESS [Concomitant]
     Active Substance: RALTEGRAVIR POTASSIUM
     Dosage: UNK
     Route: 065

REACTIONS (2)
  - Blood thyroid stimulating hormone increased [Recovering/Resolving]
  - Foetal exposure during pregnancy [Unknown]

NARRATIVE: CASE EVENT DATE: 20240930
